FAERS Safety Report 5529145-X (Version None)
Quarter: 2007Q4

REPORT INFORMATION
  Report Type: 
  Country: None (occurrence: None)
  Receive Date: 20071129
  Receipt Date: 20070208
  Transmission Date: 20080405
  Serious: No
  Sender: FDA-Public Use
  Company Number: A0638897A

PATIENT
  Age: 60 Year
  Sex: Female

DRUGS (11)
  1. WELLBUTRIN SR [Suspect]
     Dosage: 150MG PER DAY
     Route: 048
     Dates: start: 20060201
  2. SINGULAIR [Concomitant]
  3. COZAAR [Concomitant]
  4. LASIX [Concomitant]
  5. LIPITOR [Concomitant]
  6. ACTONEL [Concomitant]
  7. PROVENTIL [Concomitant]
  8. PULMICORT [Concomitant]
  9. NASAREL [Concomitant]
  10. LEVOXYL [Concomitant]
  11. UNKNOWN MEDICATION [Concomitant]

REACTIONS (1)
  - MEMORY IMPAIRMENT [None]
